FAERS Safety Report 4875710-2 (Version None)
Quarter: 2006Q1

REPORT INFORMATION
  Report Type: 
  Country: None (occurrence: None)
  Receive Date: 20060109
  Receipt Date: 20051227
  Transmission Date: 20060701
  Serious: Yes (Death, Life-Threatening)
  Sender: FDA-Public Use
  Company Number: HR-NOVOPROD-249660

PATIENT
  Age: 66 Year
  Sex: Male

DRUGS (7)
  1. NOVOSEVEN [Suspect]
     Dosage: 7.2 MG, UNK
     Route: 042
     Dates: start: 20051103, end: 20051103
  2. RINGER'S [Concomitant]
     Route: 042
     Dates: start: 20051028, end: 20051103
  3. RANITIDINE [Concomitant]
     Route: 042
     Dates: start: 20051028, end: 20051103
  4. TRAMADOL HCL [Concomitant]
     Indication: PAIN
     Route: 042
  5. METHYLPREDNISOLONE [Concomitant]
     Route: 042
     Dates: start: 20051104, end: 20051109
  6. CYCLOPHOSPHAMIDE [Concomitant]
     Route: 042
     Dates: start: 20051107, end: 20051109
  7. ANTIHEMOPHILIC FACTOR (HUMAN) [Concomitant]
     Dosage: 3000 U, TID
     Route: 042
     Dates: start: 20051103, end: 20051109

REACTIONS (2)
  - ACQUIRED HAEMOPHILIA [None]
  - CEREBRAL HAEMORRHAGE [None]
